FAERS Safety Report 20995020 (Version 3)
Quarter: 2022Q2

REPORT INFORMATION
  Report Type: Report from Study
  Country: TN (occurrence: TN)
  Receive Date: 20220622
  Receipt Date: 20220630
  Transmission Date: 20220721
  Serious: Yes (Hospitalization)
  Sender: FDA-Public Use
  Company Number: TN-JNJFOC-20220627542

PATIENT
  Age: 39 Year
  Sex: Female
  Weight: 62 kg

DRUGS (5)
  1. GUSELKUMAB [Suspect]
     Active Substance: GUSELKUMAB
     Indication: Crohn^s disease
     Route: 058
     Dates: start: 20210113, end: 20220519
  2. GUSELKUMAB [Suspect]
     Active Substance: GUSELKUMAB
  3. PREDNISOLONE [Concomitant]
     Active Substance: PREDNISOLONE
     Indication: Crohn^s disease
     Route: 048
     Dates: start: 20200912
  4. ALBUTEROL [Concomitant]
     Active Substance: ALBUTEROL
     Indication: Bronchitis
     Dosage: INHALATION 2 PUFF
     Dates: start: 20220401
  5. BECLOMETHASONE DIPROPIONATE [Concomitant]
     Active Substance: BECLOMETHASONE DIPROPIONATE
     Indication: Bronchitis
     Dosage: 2 PUFF
     Route: 065
     Dates: start: 20220401

REACTIONS (1)
  - Anal abscess [Recovered/Resolved]

NARRATIVE: CASE EVENT DATE: 20220606
